FAERS Safety Report 9408289 (Version 2)
Quarter: 2013Q4

REPORT INFORMATION
  Report Type: Spontaneous
  Country: US (occurrence: US)
  Receive Date: 20130718
  Receipt Date: 20131014
  Transmission Date: 20140711
  Serious: Yes (Hospitalization)
  Sender: FDA-Public Use
  Company Number: US-GLAXOSMITHKLINE-A1032221A

PATIENT
  Age: 63 Year
  Sex: Female

DRUGS (8)
  1. ADVAIR [Suspect]
     Indication: CHRONIC OBSTRUCTIVE PULMONARY DISEASE
     Dosage: 1PUFF TWICE PER DAY
     Route: 055
     Dates: start: 2000
  2. UNKNOWN STOMACH MEDICATION [Concomitant]
  3. THYROID MEDICATION [Concomitant]
  4. DIAZEPAM [Concomitant]
  5. SYNTHROID [Concomitant]
  6. VITAMINS [Concomitant]
  7. NEXIUM [Concomitant]
  8. KETOCONAZOLE [Concomitant]

REACTIONS (25)
  - Skin exfoliation [Unknown]
  - Alopecia [Unknown]
  - Osteoporosis [Unknown]
  - Osteoarthritis [Unknown]
  - Rash pruritic [Unknown]
  - Hypothyroidism [Unknown]
  - Anxiety [Unknown]
  - Bacterial infection [Unknown]
  - Fungal infection [Unknown]
  - Dandruff [Unknown]
  - Rash [Unknown]
  - Cough [Unknown]
  - Chills [Unknown]
  - Dysphonia [Unknown]
  - Diabetes mellitus [Unknown]
  - Dry eye [Unknown]
  - Cataract [Unknown]
  - Erythema [Unknown]
  - Oropharyngeal pain [Unknown]
  - Skin disorder [Unknown]
  - Fungal skin infection [Unknown]
  - Hip surgery [Unknown]
  - Oral candidiasis [Unknown]
  - Skin candida [Unknown]
  - Ill-defined disorder [Unknown]
